FAERS Safety Report 18586175 (Version 1)
Quarter: 2020Q4

REPORT INFORMATION
  Report Type: Spontaneous
  Country: US (occurrence: US)
  Receive Date: 20201207
  Receipt Date: 20201207
  Transmission Date: 20210114
  Serious: No
  Sender: FDA-Public Use
  Company Number: US-PFIZER INC-2020476862

PATIENT
  Age: 50 Year
  Sex: Female
  Weight: 63.5 kg

DRUGS (5)
  1. CHANTIX [Suspect]
     Active Substance: VARENICLINE TARTRATE
     Dosage: UNK
     Dates: start: 2007
  2. CHANTIX [Suspect]
     Active Substance: VARENICLINE TARTRATE
     Dosage: 1 MG, DAILY
     Route: 048
  3. CHANTIX [Suspect]
     Active Substance: VARENICLINE TARTRATE
     Dosage: 0.5 MG, DAILY
  4. CHANTIX [Suspect]
     Active Substance: VARENICLINE TARTRATE
     Dosage: UNK
     Dates: start: 2013
  5. CHANTIX [Suspect]
     Active Substance: VARENICLINE TARTRATE
     Dosage: 2 MG, DAILY

REACTIONS (4)
  - Psychotic disorder [Unknown]
  - Intentional product use issue [Unknown]
  - Wrong technique in product usage process [Unknown]
  - Irritability [Unknown]
